FAERS Safety Report 14710122 (Version 1)
Quarter: 2018Q2

REPORT INFORMATION
  Report Type: Spontaneous
  Country: US (occurrence: US)
  Receive Date: 20180403
  Receipt Date: 20180403
  Transmission Date: 20180711
  Serious: Yes (Other)
  Sender: FDA-Public Use
  Company Number: US-BAYER-2018-048626

PATIENT
  Age: 31 Year
  Sex: Male

DRUGS (3)
  1. KOGENATE FS [Suspect]
     Active Substance: ANTIHEMOPHILIC FACTOR, HUMAN RECOMBINANT
     Indication: FACTOR VIII DEFICIENCY
     Dosage: USED 2  DOSES TO TREAT THE BLEEDING EVENT
     Route: 042
     Dates: start: 20180308
  2. KOGENATE FS [Suspect]
     Active Substance: ANTIHEMOPHILIC FACTOR, HUMAN RECOMBINANT
     Indication: FACTOR VIII DEFICIENCY
     Dosage: 3140 IU, QOD
     Route: 042
     Dates: start: 20171115
  3. KOGENATE FS [Suspect]
     Active Substance: ANTIHEMOPHILIC FACTOR, HUMAN RECOMBINANT
     Indication: FACTOR VIII DEFICIENCY
     Dosage: DOSED DAILY FOR BLEEDING
     Dates: start: 201803

REACTIONS (2)
  - Haemarthrosis [None]
  - Haemarthrosis [None]

NARRATIVE: CASE EVENT DATE: 20180308
